FAERS Safety Report 8060178-8 (Version None)
Quarter: 2012Q1

REPORT INFORMATION
  Report Type: 
  Country: None (occurrence: None)
  Receive Date: 20120119
  Receipt Date: 20120119
  Transmission Date: 20120608
  Serious: Yes (Hospitalization)
  Sender: FDA-Public Use
  Company Number: None

PATIENT
  Age: 80 Year
  Sex: Female
  Weight: 54.9 kg

DRUGS (6)
  1. LEVAQUIN [Suspect]
     Indication: URINARY TRACT INFECTION
     Dosage: 750MG ONCE IV RECENT
     Route: 042
  2. ASPIRIN [Concomitant]
  3. M.V.I. [Concomitant]
  4. AMITRIPTYLINE HCL [Concomitant]
  5. CARVEDILOL [Concomitant]
  6. SIMVASTATIN [Concomitant]

REACTIONS (1)
  - HALLUCINATION, AUDITORY [None]
